FAERS Safety Report 6713078-7 (Version None)
Quarter: 2010Q2

REPORT INFORMATION
  Report Type: 
  Country: None (occurrence: None)
  Receive Date: 20100506
  Receipt Date: 20100426
  Transmission Date: 20101027
  Serious: Yes (Hospitalization)
  Sender: FDA-Public Use
  Company Number: ES-SANOFI-AVENTIS-2010SA024165

PATIENT
  Age: 80 Year
  Sex: Male

DRUGS (6)
  1. TAXOTERE [Suspect]
     Route: 041
     Dates: start: 20100219, end: 20100219
  2. DEXAMETHASONE [Concomitant]
     Route: 042
     Dates: start: 20100219, end: 20100219
  3. PANTOPRAZOLE [Concomitant]
     Indication: PROPHYLAXIS AGAINST GASTROINTESTINAL ULCER
     Dates: start: 20100201
  4. KYTRIL [Concomitant]
     Indication: VOMITING
     Dates: start: 20100219, end: 20100221
  5. URBASON [Concomitant]
     Route: 048
     Dates: start: 20100220, end: 20100224
  6. ZOMETA [Concomitant]
     Indication: METASTASES TO BONE MARROW
     Route: 042
     Dates: start: 20100219, end: 20100219

REACTIONS (1)
  - HAEMOPTYSIS [None]
